FAERS Safety Report 6207951-6 (Version None)
Quarter: 2009Q2

REPORT INFORMATION
  Report Type: 
  Country: None (occurrence: None)
  Receive Date: 20090529
  Receipt Date: 20081002
  Transmission Date: 20091009
  Serious: No
  Sender: FDA-Public Use
  Company Number: A0751610A

PATIENT
  Age: 73 Year
  Sex: Female

DRUGS (5)
  1. VENTOLIN [Suspect]
     Indication: EMPHYSEMA
     Dosage: 2PUFF TWICE PER DAY
     Route: 055
     Dates: start: 20080101
  2. SPIRIVA [Concomitant]
  3. PREMARIN [Concomitant]
  4. SEROQUEL [Concomitant]
  5. OXYGEN [Concomitant]

REACTIONS (4)
  - DYSPNOEA [None]
  - INHALATION THERAPY [None]
  - MEMORY IMPAIRMENT [None]
  - MENTAL IMPAIRMENT [None]
